FAERS Safety Report 8815938 (Version 1)
Quarter: 2012Q4

REPORT INFORMATION
  Report Type: 
  Country: US (occurrence: US)
  Receive Date: 20120928
  Receipt Date: 20120928
  Transmission Date: 20130627
  Serious: Yes (Other)
  Sender: FDA-Public Use
  Company Number: US-ROCHE-1130252

PATIENT
  Sex: Female

DRUGS (4)
  1. HERCEPTIN [Suspect]
     Indication: BREAST CANCER
     Dosage: loading dose
     Route: 065
     Dates: start: 19981113
  2. TAXOL [Concomitant]
  3. LEUCOVORIN [Concomitant]
  4. 5-FLUOROURACIL [Concomitant]

REACTIONS (1)
  - Ascites [Unknown]
